FAERS Safety Report 20538278 (Version 1)
Quarter: 2022Q1

REPORT INFORMATION
  Report Type: Spontaneous
  Country: US (occurrence: None)
  Receive Date: 20220302
  Receipt Date: 20220302
  Transmission Date: 20220423
  Serious: Yes (Hospitalization)
  Sender: FDA-Public Use
  Company Number: None

PATIENT
  Age: 75 Year
  Sex: Male
  Weight: 60 kg

DRUGS (1)
  1. HUMULIN N [Suspect]
     Active Substance: INSULIN HUMAN
     Indication: Diabetes mellitus
     Route: 058
     Dates: start: 20090715, end: 20211116

REACTIONS (8)
  - Hypoglycaemia [None]
  - Lethargy [None]
  - Hyperhidrosis [None]
  - Hypothyroidism [None]
  - Chronic kidney disease [None]
  - Gout [None]
  - Bile duct stone [None]
  - Blood glucose increased [None]

NARRATIVE: CASE EVENT DATE: 20211115
